FAERS Safety Report 21360248 (Version 2)
Quarter: 2022Q3

REPORT INFORMATION
  Report Type: Spontaneous
  Country: RU (occurrence: RU)
  Receive Date: 20220921
  Receipt Date: 20220929
  Transmission Date: 20221027
  Serious: Yes (Other)
  Sender: FDA-Public Use
  Company Number: RU-FreseniusKabi-FK202212645

PATIENT
  Age: 3 Year
  Sex: Male

DRUGS (8)
  1. CARBOPLATIN [Suspect]
     Active Substance: CARBOPLATIN
     Indication: Extraocular retinoblastoma
     Dosage: DOSE OF 500 MG/M2 ON THE 5TH DAY?4 COURSES OF SYSTEMIC CHEMOTHERAPY
  2. CARBOPLATIN [Suspect]
     Active Substance: CARBOPLATIN
     Dosage: DOSE OF 250 MG/M2 ON DAY 5 WITH AUTO-HSCT?5TH COURSE OF ADJUVANT CHEMOTHERAPY
  3. ETOPOSIDE [Suspect]
     Active Substance: ETOPOSIDE
     Indication: Extraocular retinoblastoma
     Dosage: DOSE OF 100 MG/M2 ON DAYS 1-5?4 COURSES OF SYSTEMIC CHEMOTHERAPY
  4. ETOPOSIDE [Suspect]
     Active Substance: ETOPOSIDE
     Dosage: DOSE OF 350 MG/M2 ON DAYS 1-5?5TH COURSE OF ADJUVANT CHEMOTHERAPY
  5. CYCLOPHOSPHAMIDE [Suspect]
     Active Substance: CYCLOPHOSPHAMIDE
     Indication: Extraocular retinoblastoma
     Dosage: DOSE OF 400 MG/M2 ON DAYS 1-5?4 COURSES OF SYSTEMIC CHEMOTHERAPY
  6. CYCLOPHOSPHAMIDE [Suspect]
     Active Substance: CYCLOPHOSPHAMIDE
     Dosage: DOSE OF 1500 MG/M2 ON DAYS 1-5?5TH COURSE OF ADJUVANT CHEMOTHERAPY
  7. METHOTREXATE [Suspect]
     Active Substance: METHOTREXATE
     Indication: Chemotherapy
     Dosage: 4 COURSE
     Route: 037
  8. PREDNISOLONE [Suspect]
     Active Substance: PREDNISOLONE
     Indication: Chemotherapy
     Dosage: 4 COURSES
     Route: 037

REACTIONS (1)
  - Generalised tonic-clonic seizure [Unknown]
